FAERS Safety Report 11804722 (Version 1)
Quarter: 2015Q4

REPORT INFORMATION
  Report Type: Spontaneous
  Country: JP (occurrence: JP)
  Receive Date: 20151205
  Receipt Date: 20151205
  Transmission Date: 20160305
  Serious: Yes (Hospitalization)
  Sender: FDA-Public Use
  Company Number: JP-ASTRAZENECA-2015SF11505

PATIENT
  Age: 70 Year
  Sex: Female
  Weight: 49 kg

DRUGS (19)
  1. LOXOPROFEN SODIUM [Concomitant]
     Active Substance: LOXOPROFEN SODIUM
     Indication: RHEUMATOID ARTHRITIS
     Route: 048
     Dates: start: 20141202
  2. LOXONIN [Concomitant]
     Active Substance: LOXOPROFEN SODIUM
     Indication: RHEUMATOID ARTHRITIS
     Route: 062
     Dates: start: 20140909
  3. SPIROPENT [Concomitant]
     Active Substance: CLENBUTEROL HYDROCHLORIDE
     Dosage: 10-30 MG, AS REQUIRED
     Route: 048
     Dates: start: 20141007
  4. PREDNISOLONE. [Concomitant]
     Active Substance: PREDNISOLONE
     Indication: RHEUMATOID ARTHRITIS
     Route: 048
     Dates: start: 20151111
  5. ONON [Concomitant]
     Active Substance: PRANLUKAST
     Route: 048
  6. RIMATIL [Concomitant]
     Active Substance: BUCILLAMINE
     Indication: RHEUMATOID ARTHRITIS
     Route: 048
  7. NEXIUM [Suspect]
     Active Substance: ESOMEPRAZOLE MAGNESIUM
     Indication: GASTROOESOPHAGEAL REFLUX DISEASE
     Route: 048
  8. DEPAS [Concomitant]
     Active Substance: ETIZOLAM
     Route: 048
  9. AMOXAN [Concomitant]
     Active Substance: AMOXAPINE
     Route: 048
  10. MAGNESIUM OXIDE. [Concomitant]
     Active Substance: MAGNESIUM OXIDE
     Route: 048
  11. LULICON [Concomitant]
     Dosage: DOSE UNKNOWN
     Route: 062
  12. SATOSALBE [Concomitant]
     Active Substance: ZINC OXIDE
     Route: 062
     Dates: start: 20150908
  13. ADOAIR [Concomitant]
     Active Substance: FLUTICASONE PROPIONATE\SALMETEROL XINAFOATE
     Route: 055
  14. TSUMURA BOIOGITO EXTRACT GRANULES FOR ETHICAL USE [Concomitant]
     Indication: RHEUMATOID ARTHRITIS
     Route: 048
     Dates: start: 20150106
  15. CLARITH [Concomitant]
     Active Substance: CLARITHROMYCIN
     Route: 048
  16. NAUZELIN [Concomitant]
     Active Substance: DOMPERIDONE
     Route: 048
  17. IGURATIMOD [Concomitant]
     Active Substance: IGURATIMOD
     Indication: RHEUMATOID ARTHRITIS
     Route: 048
  18. REBAMIPIDE [Concomitant]
     Active Substance: REBAMIPIDE
     Indication: GASTRITIS PROPHYLAXIS
     Route: 048
  19. LEXOTAN [Concomitant]
     Active Substance: BROMAZEPAM
     Dosage: DOSE UNKNOWN
     Route: 048

REACTIONS (1)
  - Pneumonia haemophilus [Recovered/Resolved]

NARRATIVE: CASE EVENT DATE: 20151111
